FAERS Safety Report 18640011 (Version 1)
Quarter: 2020Q4

REPORT INFORMATION
  Report Type: Spontaneous
  Country: US (occurrence: US)
  Receive Date: 20201220
  Receipt Date: 20201220
  Transmission Date: 20210114
  Serious: No
  Sender: FDA-Public Use
  Company Number: US-PACIRA-202000343

PATIENT
  Age: 15 Year
  Sex: Female

DRUGS (2)
  1. EXPAREL [Suspect]
     Active Substance: BUPIVACAINE
     Indication: NERVE BLOCK
     Dosage: 10ML ADMIXED WITH 10 ML OF BUPIVACAINE HCL 0.5%
     Route: 065
  2. BUPIVACAINE HCL 0.5% [Suspect]
     Active Substance: BUPIVACAINE HYDROCHLORIDE
     Indication: NERVE BLOCK
     Dosage: 10ML ADMIXED WITH EXPAREL 10 ML
     Route: 065

REACTIONS (2)
  - Product administered to patient of inappropriate age [Unknown]
  - Therapeutic product effect variable [Unknown]
